FAERS Safety Report 6833308-0 (Version None)
Quarter: 2010Q3

REPORT INFORMATION
  Report Type: 
  Country: None (occurrence: None)
  Receive Date: 20100712
  Receipt Date: 20100705
  Transmission Date: 20110219
  Serious: Yes (Hospitalization, Other)
  Sender: FDA-Public Use
  Company Number: NL-AMGEN-QUU414790

PATIENT
  Sex: Female

DRUGS (6)
  1. NEULASTA [Suspect]
     Indication: PRODUCT USED FOR UNKNOWN INDICATION
     Route: 058
     Dates: start: 20100504
  2. ALPRAZOLAM [Concomitant]
  3. DEXAMETASON [Concomitant]
  4. KYTRIL [Concomitant]
  5. APREPITANT [Concomitant]
  6. NEBIVOLOL HCL [Concomitant]

REACTIONS (3)
  - ASTHENIA [None]
  - FEBRILE NEUTROPENIA [None]
  - SENSATION OF HEAVINESS [None]
